FAERS Safety Report 4556462-2 (Version None)
Quarter: 2005Q1

REPORT INFORMATION
  Report Type: 
  Country: None (occurrence: None)
  Receive Date: 20050120
  Receipt Date: 20040809
  Transmission Date: 20050727
  Serious: Yes (Other)
  Sender: FDA-Public Use
  Company Number: DE-ABBOTT-04P-062-0269993-00

PATIENT
  Sex: Female

DRUGS (10)
  1. ERGENYL [Suspect]
     Indication: SIMPLE PARTIAL SEIZURES
     Route: 048
     Dates: start: 20040728, end: 20040730
  2. ERGENYL INJECTION [Suspect]
     Indication: STATUS EPILEPTICUS
     Route: 042
     Dates: start: 20040727, end: 20040727
  3. ERGENYL INJECTION [Suspect]
     Indication: HAEMANGIOMA
  4. ERGENYL INJECTION [Suspect]
     Indication: SIMPLE PARTIAL SEIZURES
  5. OXCARBAZEPINE [Concomitant]
     Indication: DRUG USE FOR UNKNOWN INDICATION
     Dates: start: 20040730
  6. PREDNISOLONE [Concomitant]
     Indication: CHRONIC OBSTRUCTIVE PULMONARY DISEASE
     Route: 048
     Dates: end: 20040730
  7. PREDNISOLONE [Concomitant]
     Route: 048
     Dates: start: 20040731
  8. ALLOPURINOL [Concomitant]
     Indication: HYPERURICAEMIA
     Route: 048
  9. THEOPHYLLINE [Concomitant]
     Indication: CHRONIC OBSTRUCTIVE PULMONARY DISEASE
     Route: 048
     Dates: end: 20040805
  10. METOCLOPRAMIDE HYDROCHLORIDE [Concomitant]
     Indication: NAUSEA
     Route: 048
     Dates: start: 20040727, end: 20040727

REACTIONS (2)
  - DELUSIONAL DISORDER, PERSECUTORY TYPE [None]
  - HALLUCINATION [None]
